FAERS Safety Report 13282519 (Version 1)
Quarter: 2017Q1

REPORT INFORMATION
  Report Type: Spontaneous
  Country: IE (occurrence: IE)
  Receive Date: 20170301
  Receipt Date: 20170301
  Transmission Date: 20170428
  Serious: Yes (Hospitalization)
  Sender: FDA-Public Use
  Company Number: IE-JNJFOC-20170227293

PATIENT
  Age: 68 Year
  Sex: Male
  Weight: 80 kg

DRUGS (6)
  1. ULTIBRO BREEZHALER [Concomitant]
     Active Substance: GLYCOPYRRONIUM\INDACATEROL
     Route: 065
     Dates: start: 20160213
  2. TRITACE [Concomitant]
     Active Substance: RAMIPRIL
     Route: 065
     Dates: start: 20111101
  3. JANUMET [Concomitant]
     Active Substance: METFORMIN HYDROCHLORIDE\SITAGLIPTIN PHOSPHATE
     Dosage: 1000/50 MG
     Route: 065
     Dates: start: 20141023
  4. INVOKANA [Suspect]
     Active Substance: CANAGLIFLOZIN
     Indication: TYPE 2 DIABETES MELLITUS
     Route: 048
     Dates: start: 20170202
  5. NUPRIN [Concomitant]
     Active Substance: IBUPROFEN
     Route: 065
     Dates: start: 20111101
  6. PRAVASTATIN. [Concomitant]
     Active Substance: PRAVASTATIN
     Route: 065
     Dates: start: 20111101

REACTIONS (1)
  - Biliary colic [Not Recovered/Not Resolved]

NARRATIVE: CASE EVENT DATE: 20170204
